FAERS Safety Report 25129801 (Version 1)
Quarter: 2025Q1

REPORT INFORMATION
  Report Type: Spontaneous
  Country: US (occurrence: None)
  Receive Date: 20250326
  Receipt Date: 20250326
  Transmission Date: 20250409
  Serious: Yes (Other)
  Sender: FDA-CTU
  Company Number: None

PATIENT
  Age: 54 Year
  Sex: Female
  Weight: 67.8 kg

DRUGS (1)
  1. LETROZOLE [Suspect]
     Active Substance: LETROZOLE

REACTIONS (3)
  - Bone pain [None]
  - Dry mouth [None]
  - Brain fog [None]
